FAERS Safety Report 4522360-3 (Version None)
Quarter: 2004Q4

REPORT INFORMATION
  Report Type: 
  Country: None (occurrence: None)
  Receive Date: 20041209
  Receipt Date: 20041027
  Transmission Date: 20050328
  Serious: Yes (Hospitalization)
  Sender: FDA-Public Use
  Company Number: FR-GLAXOSMITHKLINE-B0349397A

PATIENT
  Age: 26 Year
  Sex: Male
  Weight: 65 kg

DRUGS (5)
  1. DEROXAT [Suspect]
     Indication: ILL-DEFINED DISORDER
     Dosage: 20MG SEE DOSAGE TEXT
     Route: 048
     Dates: end: 20040905
  2. IXEL [Suspect]
     Dosage: 50MG PER DAY
     Route: 048
     Dates: start: 20040908, end: 20040908
  3. XANAX [Suspect]
     Dosage: 30MG PER DAY
     Route: 048
     Dates: end: 20040905
  4. NOCTAMIDE [Suspect]
     Dosage: 28UNIT PER DAY
     Route: 048
     Dates: end: 20040905
  5. ATARAX [Concomitant]
     Route: 048
     Dates: end: 20040905

REACTIONS (9)
  - DYSURIA [None]
  - FALL [None]
  - GRAND MAL CONVULSION [None]
  - INTENTIONAL OVERDOSE [None]
  - MULTIPLE DRUG OVERDOSE INTENTIONAL [None]
  - MUSCLE CONTRACTURE [None]
  - MYDRIASIS [None]
  - SUICIDE ATTEMPT [None]
  - TONGUE BITING [None]
